FAERS Safety Report 24732485 (Version 2)
Quarter: 2025Q4

REPORT INFORMATION
  Report Type: Report from Study
  Country: KR (occurrence: KR)
  Receive Date: 20241213
  Receipt Date: 20251107
  Transmission Date: 20260118
  Serious: Yes (Death, Hospitalization, Other)
  Sender: ABBVIE
  Company Number: KR-ABBVIE-6043872

PATIENT
  Age: 76 Year
  Sex: Male
  Weight: 59 kg

DRUGS (29)
  1. VENCLEXTA [Suspect]
     Active Substance: VENETOCLAX
     Indication: Acute myeloid leukaemia
     Route: 048
     Dates: start: 20241020, end: 20241113
  2. VENCLEXTA [Suspect]
     Active Substance: VENETOCLAX
     Indication: Acute myeloid leukaemia
     Route: 048
     Dates: start: 20241019, end: 20241019
  3. VENCLEXTA [Suspect]
     Active Substance: VENETOCLAX
     Indication: Acute myeloid leukaemia
     Route: 048
     Dates: start: 20241017, end: 20241017
  4. VENCLEXTA [Suspect]
     Active Substance: VENETOCLAX
     Indication: Acute myeloid leukaemia
     Route: 048
     Dates: start: 20241018, end: 20241018
  5. Lipinon [Concomitant]
     Indication: Dyslipidaemia
     Route: 048
     Dates: start: 20241014
  6. NALOXONE HYDROCHLORIDE\OXYCODONE HYDROCHLORIDE [Concomitant]
     Active Substance: NALOXONE HYDROCHLORIDE\OXYCODONE HYDROCHLORIDE
     Indication: Gout
     Dosage: 5/2.5MG
     Route: 048
     Dates: start: 20241018
  7. ALLOPURINOL [Concomitant]
     Active Substance: ALLOPURINOL
     Indication: Gout
     Route: 048
     Dates: start: 20241014, end: 20241027
  8. ALLOPURINOL [Concomitant]
     Active Substance: ALLOPURINOL
     Indication: Gout
     Route: 048
     Dates: start: 20241107, end: 20241126
  9. Tazoperan [Concomitant]
     Indication: Pyrexia
     Dosage: TIME INTERVAL: 0.33333333 DAYS
     Route: 042
     Dates: start: 20241102, end: 20241106
  10. Solondo [Concomitant]
     Indication: Gout
     Route: 048
     Dates: start: 20241021
  11. VANCOMYCIN HYDROCHLORIDE [Concomitant]
     Active Substance: VANCOMYCIN HYDROCHLORIDE
     Indication: Pyrexia
     Route: 042
     Dates: start: 20241106, end: 20241111
  12. MICARDIS [Concomitant]
     Active Substance: TELMISARTAN
     Indication: Hypertension
     Route: 048
     Dates: start: 20241014
  13. AMLODIPINE CAMSYLATE [Concomitant]
     Active Substance: AMLODIPINE CAMSYLATE
     Indication: Hypertension
     Route: 048
     Dates: start: 20241014
  14. RAMOSETRON HYDROCHLORIDE [Concomitant]
     Active Substance: RAMOSETRON HYDROCHLORIDE
     Indication: Prophylaxis of nausea and vomiting
     Route: 042
     Dates: start: 20241017, end: 20241023
  15. DIFLUCAN [Concomitant]
     Active Substance: FLUCONAZOLE
     Indication: Infection prophylaxis
     Dosage: 50 MG
     Route: 048
     Dates: start: 20241017, end: 20241103
  16. Vizadakin [Concomitant]
     Indication: Acute myeloid leukaemia
     Route: 042
     Dates: start: 20241017, end: 20241023
  17. FEBUXOSTAT [Concomitant]
     Active Substance: FEBUXOSTAT
     Indication: Blood uric acid increased
     Route: 048
     Dates: start: 20241127
  18. Tylicol [Concomitant]
     Indication: Pyrexia
     Dosage: FREQUENCY TEXT: PRN
     Route: 042
     Dates: start: 20241102, end: 20241103
  19. LEVOFLOXACIN [Concomitant]
     Active Substance: LEVOFLOXACIN
     Indication: Infection prophylaxis
     Route: 048
     Dates: start: 20241017, end: 20241101
  20. Zopista [Concomitant]
     Indication: Insomnia
     Route: 048
     Dates: start: 20241112
  21. SULFAMETHOXAZOLE\TRIMETHOPRIM [Concomitant]
     Active Substance: SULFAMETHOXAZOLE\TRIMETHOPRIM
     Indication: Infection prophylaxis
     Route: 048
     Dates: start: 20241016, end: 20241203
  22. LENOGRASTIM [Concomitant]
     Active Substance: LENOGRASTIM
     Indication: Neutrophil count decreased
     Dosage: 250MCG
     Route: 042
     Dates: start: 20241024, end: 20241201
  23. Allpain [Concomitant]
     Indication: Gout
     Dosage: TIME INTERVAL: 0.33333333 DAYS: FREQUENCY TEXT: PRN
     Route: 048
     Dates: start: 20241022, end: 20241023
  24. Allpain [Concomitant]
     Indication: Gout
     Dosage: FREQUENCY TEXT: PRN
     Route: 042
     Dates: start: 20241019, end: 20241021
  25. Allpain [Concomitant]
     Indication: Gout
     Dosage: FREQUENCY TEXT: PRN
     Route: 042
     Dates: start: 20241105, end: 20241118
  26. Norzyme [Concomitant]
     Indication: Dyspepsia
     Route: 048
     Dates: start: 20241018
  27. MEROPENEM [Concomitant]
     Active Substance: MEROPENEM
     Indication: Pyrexia
     Dosage: TIME INTERVAL: 0.33333333 DAYS
     Route: 042
     Dates: start: 20241106, end: 20241111
  28. Vacrax [Concomitant]
     Indication: Infection prophylaxis
     Dosage: 200 MG
     Route: 048
     Dates: start: 20241016, end: 20241203
  29. Casfung [Concomitant]
     Indication: Product used for unknown indication
     Route: 042
     Dates: start: 20241104, end: 20241112

REACTIONS (1)
  - Subdural haemorrhage [Fatal]

NARRATIVE: CASE EVENT DATE: 20241208
